FAERS Safety Report 11532569 (Version 1)
Quarter: 2015Q3

REPORT INFORMATION
  Report Type: Spontaneous
  Country: CN (occurrence: CN)
  Receive Date: 20150921
  Receipt Date: 20150921
  Transmission Date: 20151125
  Serious: Yes (Hospitalization)
  Sender: FDA-Public Use
  Company Number: CN-ASTRAZENECA-2015SE91050

PATIENT
  Age: 32392 Day
  Sex: Female

DRUGS (10)
  1. TEPRENONE [Suspect]
     Active Substance: TEPRENONE
     Indication: GASTRIC DISORDER
     Route: 048
     Dates: start: 20141213, end: 20141217
  2. CELEBREX [Suspect]
     Active Substance: CELECOXIB
     Indication: ANALGESIC THERAPY
     Route: 048
     Dates: end: 20141217
  3. MEPEM [Suspect]
     Active Substance: MEROPENEM
     Indication: OSTEOARTHRITIS
     Route: 041
     Dates: start: 20141213, end: 20141219
  4. LIPITOR [Suspect]
     Active Substance: ATORVASTATIN CALCIUM
     Indication: HYPERLIPIDAEMIA
     Route: 048
     Dates: start: 20141126, end: 20141215
  5. MEPEM [Suspect]
     Active Substance: MEROPENEM
     Indication: PNEUMONIA
     Route: 041
     Dates: start: 20141213, end: 20141219
  6. MENATETRENONE [Suspect]
     Active Substance: MENATETRENONE
     Indication: OSTEOPENIA
     Route: 048
     Dates: start: 20141213, end: 20141217
  7. DIGOXIN. [Concomitant]
     Active Substance: DIGOXIN
     Dates: start: 20141215, end: 20141224
  8. MEPEM [Suspect]
     Active Substance: MEROPENEM
     Indication: INFECTION
     Route: 041
     Dates: start: 20141213, end: 20141219
  9. RABEPRAZOLE SODIUM. [Suspect]
     Active Substance: RABEPRAZOLE SODIUM
     Indication: HYPERCHLORHYDRIA
     Route: 048
     Dates: start: 20141213, end: 20141217
  10. ALPRAZOLAM. [Concomitant]
     Active Substance: ALPRAZOLAM
     Dates: start: 20141215, end: 20141224

REACTIONS (4)
  - Alanine aminotransferase increased [Recovered/Resolved]
  - Blood creatine phosphokinase increased [Recovered/Resolved]
  - Aspartate aminotransferase increased [Recovered/Resolved]
  - Leukopenia [Recovered/Resolved]

NARRATIVE: CASE EVENT DATE: 20141217
